FAERS Safety Report 5745742-0 (Version None)
Quarter: 2008Q2

REPORT INFORMATION
  Report Type: 
  Country: None (occurrence: None)
  Receive Date: 20080521
  Receipt Date: 20080512
  Transmission Date: 20081010
  Serious: Yes (Other)
  Sender: FDA-Public Use
  Company Number: GB-PFIZER INC-2008041328

PATIENT
  Age: 75 Year
  Sex: Male

DRUGS (4)
  1. AMLODIPINE [Suspect]
  2. ASPIRIN [Concomitant]
  3. INSULIN [Concomitant]
  4. LOSARTAN POTASSIUM [Concomitant]

REACTIONS (1)
  - HEPATIC ENZYME INCREASED [None]
